FAERS Safety Report 14160566 (Version 1)
Quarter: 2017Q4

REPORT INFORMATION
  Report Type: Spontaneous
  Country: US (occurrence: None)
  Receive Date: 20171103
  Receipt Date: 20171103
  Transmission Date: 20180321
  Serious: Yes (Life-Threatening, Hospitalization)
  Sender: FDA-Public Use
  Company Number: None

PATIENT
  Age: 89 Year
  Sex: Male
  Weight: 156.8 kg

DRUGS (2)
  1. CLOPIDOGREL [Suspect]
     Active Substance: CLOPIDOGREL BISULFATE
     Indication: ACUTE MYOCARDIAL INFARCTION
     Route: 048
     Dates: start: 20171019, end: 20171020
  2. HEPARIN [Suspect]
     Active Substance: HEPARIN SODIUM
     Indication: ACUTE MYOCARDIAL INFARCTION
     Dosage: DOSE - 1660 UNITS?FREQUENCY - OTHER
     Route: 042
     Dates: start: 20171019, end: 20171020

REACTIONS (3)
  - Sepsis [None]
  - Haemorrhage intracranial [None]
  - Cardiogenic shock [None]

NARRATIVE: CASE EVENT DATE: 20171020
